FAERS Safety Report 9634373 (Version 2)
Quarter: 2013Q4

REPORT INFORMATION
  Report Type: Spontaneous
  Country: IT (occurrence: IT)
  Receive Date: 20131021
  Receipt Date: 20131107
  Transmission Date: 20140711
  Serious: Yes (Other)
  Sender: FDA-Public Use
  Company Number: IT-JNJFOC-20131008127

PATIENT
  Age: 30 Year
  Sex: Female

DRUGS (1)
  1. HALDOL [Suspect]
     Indication: PRODUCT USED FOR UNKNOWN INDICATION
     Dosage: STRENGTH 0.2%
     Route: 048
     Dates: start: 20131011, end: 20131011

REACTIONS (3)
  - Self injurious behaviour [Unknown]
  - Asthenia [Recovering/Resolving]
  - Intentional drug misuse [Unknown]
